FAERS Safety Report 8712054 (Version 2)
Quarter: 2012Q4

REPORT INFORMATION
  Report Type: 
  Country: FR (occurrence: FR)
  Receive Date: 20120807
  Receipt Date: 20120829
  Transmission Date: 20130627
  Serious: Yes (Hospitalization, Other)
  Sender: FDA-Public Use
  Company Number: PHHY2012FR067393

PATIENT
  Age: 56 Year
  Sex: Female

DRUGS (13)
  1. DOXORUBICIN [Suspect]
     Indication: HODGKIN^S DISEASE
     Dosage: 25 mg/m2, 1 times per 1 cycle
     Route: 042
     Dates: start: 20120118, end: 20120523
  2. BLEOMYCIN [Suspect]
     Indication: HODGKIN^S DISEASE
     Dosage: 10 mg/m2,1 times per 1 cycle
     Route: 042
     Dates: start: 20120118, end: 20120523
  3. VINBLASTINE [Suspect]
     Indication: HODGKIN^S DISEASE
     Dosage: 6 mg/m2, 1 time per 1 cycle
     Route: 042
     Dates: start: 20120229, end: 20120523
  4. DACARBAZINE [Suspect]
     Indication: HODGKIN^S DISEASE
     Dosage: 375 mg/m2, 1 time per 1 cycle
     Dates: start: 20120229, end: 20120523
  5. ZELITREX [Concomitant]
     Dates: start: 201201
  6. GUTRON [Concomitant]
     Dates: start: 2003
  7. ATARAX [Concomitant]
  8. SPECIAFOLDINE [Concomitant]
  9. ETOPOSIDE [Concomitant]
  10. CYCLOPHOSPHAMIDE [Concomitant]
  11. VINCRISTINE [Concomitant]
  12. PROCARBAZINE [Concomitant]
  13. PREDNISONE [Concomitant]

REACTIONS (7)
  - Interstitial lung disease [Recovering/Resolving]
  - Pulmonary arterial hypertension [Not Recovered/Not Resolved]
  - Restrictive pulmonary disease [Recovering/Resolving]
  - Lung disorder [Recovering/Resolving]
  - Dyspnoea [Recovering/Resolving]
  - Asthenia [Recovering/Resolving]
  - Venoocclusive disease [Unknown]
